FAERS Safety Report 5116914-3 (Version None)
Quarter: 2006Q3

REPORT INFORMATION
  Report Type: 
  Country: None (occurrence: None)
  Receive Date: 20060927
  Receipt Date: 20060927
  Transmission Date: 20061208
  Serious: Yes (Hospitalization)
  Sender: FDA-Public Use
  Company Number: None

PATIENT
  Age: 60 Year
  Sex: Male
  Weight: 86.5 kg

DRUGS (16)
  1. FLUDARABINE [Suspect]
     Indication: MYELODYSPLASTIC SYNDROME
     Dosage: 71MG IV QD
     Route: 042
     Dates: start: 20060720, end: 20060724
  2. CYTOXAN [Suspect]
     Indication: MYELODYSPLASTIC SYNDROME
     Dosage: 2GM IV QD
     Route: 042
     Dates: start: 20060725, end: 20060726
  3. UMBILICAL CORD BLOOD [Suspect]
     Indication: MYELODYSPLASTIC SYNDROME
     Dates: start: 20060720, end: 20060724
  4. NEUPOGEN [Concomitant]
  5. CYCLOSPORINE [Concomitant]
  6. MYCOPHENOLATE MOFETIL [Concomitant]
  7. GM-CSF [Concomitant]
  8. ACYCLOVIR [Concomitant]
  9. CASPOFUNGIN [Concomitant]
  10. CIPROFLOXACIN [Concomitant]
  11. PIPTO/TAZO [Concomitant]
  12. URSODIOL [Concomitant]
  13. DIGOXIN [Concomitant]
  14. DILTIAZEM HCL [Concomitant]
  15. METROPROLOL [Concomitant]
  16. MAGNESIUM OXIDE [Concomitant]

REACTIONS (4)
  - NEUTROPHIL COUNT ABNORMAL [None]
  - PLATELET COUNT ABNORMAL [None]
  - STEM CELL TRANSPLANT [None]
  - TRANSPLANT FAILURE [None]
